APPROVED DRUG PRODUCT: AZITHROMYCIN
Active Ingredient: AZITHROMYCIN
Strength: EQ 600MG BASE
Dosage Form/Route: TABLET;ORAL
Application: A065150 | Product #001
Applicant: TEVA PHARMACEUTICALS USA INC
Approved: Nov 14, 2005 | RLD: No | RS: No | Type: DISCN